FAERS Safety Report 6011616-3 (Version None)
Quarter: 2008Q4

REPORT INFORMATION
  Report Type: 
  Country: None (occurrence: None)
  Receive Date: 20081218
  Receipt Date: 20071106
  Transmission Date: 20090506
  Serious: Yes (Death)
  Sender: FDA-Public Use
  Company Number: US-ROCHE-530485

PATIENT
  Age: 64 Year
  Sex: Male

DRUGS (3)
  1. FUZEON [Suspect]
     Route: 065
     Dates: start: 20070911, end: 20071029
  2. ISENTRESS [Concomitant]
     Indication: HIV INFECTION
     Dates: start: 20070911, end: 20071029
  3. MARAVIROC [Concomitant]
     Indication: HIV INFECTION
     Dosage: TRADE NAME REPORTED AS 'SELZENTRY'.
     Dates: start: 20070911, end: 20071029

REACTIONS (1)
  - MYOCARDIAL INFARCTION [None]
